FAERS Safety Report 20897008 (Version 2)
Quarter: 2022Q3

REPORT INFORMATION
  Report Type: Spontaneous
  Country: US (occurrence: US)
  Receive Date: 20220531
  Receipt Date: 20220701
  Transmission Date: 20221027
  Serious: Yes (Death, Other)
  Sender: FDA-Public Use
  Company Number: US-PFIZER INC-202200773069

PATIENT
  Age: 76 Year
  Sex: Male
  Weight: 72.562 kg

DRUGS (6)
  1. MEKTOVI [Suspect]
     Active Substance: BINIMETINIB
     Indication: Colon cancer
     Dosage: 15 MG
  2. MEKTOVI [Suspect]
     Active Substance: BINIMETINIB
     Dosage: 45 MG, 2X/DAY (12HOURS)
     Dates: start: 20211101
  3. BRAFTOVI [Suspect]
     Active Substance: ENCORAFENIB
     Indication: Colon cancer
     Dosage: 75 MG
  4. BRAFTOVI [Suspect]
     Active Substance: ENCORAFENIB
     Dosage: 300 MG, DAILY
     Dates: start: 20211101
  5. ELIQUIS [Concomitant]
     Active Substance: APIXABAN
     Dosage: 5 MG, 2X/DAY
     Dates: start: 202001, end: 20220512
  6. ERBITUX [Concomitant]
     Active Substance: CETUXIMAB
     Dosage: 500 MG
     Dates: start: 20211101, end: 20220512

REACTIONS (1)
  - Neoplasm progression [Fatal]
